FAERS Safety Report 8953267 (Version 2)
Quarter: 2013Q1

REPORT INFORMATION
  Report Type: Spontaneous
  Country: US (occurrence: US)
  Receive Date: 20121206
  Receipt Date: 20130219
  Transmission Date: 20140127
  Serious: Yes (Other)
  Sender: FDA-Public Use
  Company Number: US-JNJFOC-20121114370

PATIENT
  Sex: Female

DRUGS (2)
  1. REMICADE [Suspect]
     Indication: COLITIS ULCERATIVE
     Route: 042
     Dates: start: 200904, end: 201210
  2. APRISO [Concomitant]
     Indication: COLITIS ULCERATIVE
     Route: 065
     Dates: start: 201108

REACTIONS (3)
  - Cervical dysplasia [Unknown]
  - Skin papilloma [Not Recovered/Not Resolved]
  - Therapeutic response decreased [Unknown]
